FAERS Safety Report 5730152-2 (Version None)
Quarter: 2008Q2

REPORT INFORMATION
  Report Type: 
  Country: None (occurrence: None)
  Receive Date: 20080507
  Receipt Date: 20080418
  Transmission Date: 20081010
  Serious: Yes (Other)
  Sender: FDA-Public Use
  Company Number: PHHY2008JP06294

PATIENT
  Age: 2 Year
  Sex: Male

DRUGS (1)
  1. DIOVAN [Suspect]
     Indication: ACCIDENTAL EXPOSURE
     Dosage: 40 MG, ONCE/SINGLE
     Route: 048
     Dates: start: 20080417, end: 20080417

REACTIONS (2)
  - ACCIDENTAL EXPOSURE [None]
  - BLOOD PRESSURE DIASTOLIC DECREASED [None]
